FAERS Safety Report 10450032 (Version 1)
Quarter: 2014Q3

REPORT INFORMATION
  Report Type: Spontaneous
  Country: GB (occurrence: GB)
  Receive Date: 20140912
  Receipt Date: 20140912
  Transmission Date: 20150326
  Serious: Yes (Other)
  Sender: FDA-Public Use
  Company Number: GB-WATSON-2014-19657

PATIENT
  Age: 29 Year
  Sex: Female

DRUGS (1)
  1. TRIMETHOPRIM (UNKNOWN) [Suspect]
     Active Substance: TRIMETHOPRIM
     Indication: URINARY TRACT INFECTION
     Dosage: 200 MG, UNKNOWN
     Route: 048
     Dates: start: 20140813, end: 20140813

REACTIONS (2)
  - Sensory disturbance [Unknown]
  - Feeling abnormal [Unknown]

NARRATIVE: CASE EVENT DATE: 20140813
